FAERS Safety Report 6368442-5 (Version None)
Quarter: 2009Q3

REPORT INFORMATION
  Report Type: 
  Country: None (occurrence: None)
  Receive Date: 20090922
  Receipt Date: 20090914
  Transmission Date: 20100115
  Serious: No
  Sender: FDA-Public Use
  Company Number: US-B.I. PHARMACEUTICALS,INC./RIDGEFIELD-2009-BP-10870BP

PATIENT
  Sex: Female

DRUGS (13)
  1. ATROVENT [Suspect]
     Indication: MULTIPLE ALLERGIES
     Route: 045
     Dates: start: 20090714
  2. MELOXICAM [Concomitant]
     Indication: ARTHRITIS
  3. OMEPRAZOLE [Concomitant]
     Indication: GASTROOESOPHAGEAL REFLUX DISEASE
  4. HYDROCHLOROTHIAZIDE [Concomitant]
     Indication: HYPERTENSION
  5. LISINOPRIL [Concomitant]
     Indication: HYPERTENSION
  6. ATENOLOL [Concomitant]
     Indication: HYPERTENSION
  7. PROPOXYPHENE HCL CAP [Concomitant]
     Indication: BACK PAIN
  8. GABAPENTIN [Concomitant]
     Indication: NEUROPATHY PERIPHERAL
  9. LORAZEPAM [Concomitant]
     Indication: ANXIETY
  10. IMODIUM [Concomitant]
     Indication: DIARRHOEA
  11. VITAMIN [Concomitant]
     Indication: PROPHYLAXIS
  12. NITROGLYCERIN [Concomitant]
     Indication: CHEST PAIN
  13. DURAGESIC-100 [Concomitant]
     Indication: BACK PAIN

REACTIONS (1)
  - RHINORRHOEA [None]
